FAERS Safety Report 19974791 (Version 2)
Quarter: 2021Q4

REPORT INFORMATION
  Report Type: Spontaneous
  Country: US (occurrence: US)
  Receive Date: 20211020
  Receipt Date: 20211119
  Transmission Date: 20220303
  Serious: No
  Sender: FDA-Public Use
  Company Number: US-GLAXOSMITHKLINE-US2021214058

PATIENT
  Sex: Female

DRUGS (3)
  1. ZEJULA [Suspect]
     Active Substance: NIRAPARIB
     Indication: Malignant neoplasm of uterine adnexa
     Dosage: 300 MG, QD
     Route: 048
     Dates: start: 20210921
  2. ZEJULA [Suspect]
     Active Substance: NIRAPARIB
     Dosage: 200 MG, QD
  3. ZEJULA [Suspect]
     Active Substance: NIRAPARIB
     Dosage: 200 MG, QD
     Route: 048

REACTIONS (7)
  - Rash [Unknown]
  - Fatigue [Unknown]
  - Asthenia [Unknown]
  - Carbohydrate antigen 125 increased [Unknown]
  - Hypotension [Unknown]
  - Heart rate decreased [Unknown]
  - Dysphonia [Unknown]
